FAERS Safety Report 9360695 (Version 1)
Quarter: 2013Q2

REPORT INFORMATION
  Report Type: Spontaneous
  Country: KR (occurrence: KR)
  Receive Date: 20130621
  Receipt Date: 20130621
  Transmission Date: 20140414
  Serious: Yes (Death, Hospitalization, Other)
  Sender: FDA-Public Use
  Company Number: KR-ACCORD-018107

PATIENT
  Age: 64 Year
  Sex: Female

DRUGS (4)
  1. SIMVASTATIN [Suspect]
     Indication: DYSLIPIDAEMIA
  2. GEMCITABINE [Suspect]
     Indication: LUNG ADENOCARCINOMA STAGE IV
  3. CISPLATIN [Suspect]
     Indication: LUNG ADENOCARCINOMA STAGE IV
  4. SIROLIMUS [Interacting]
     Indication: LUNG ADENOCARCINOMA STAGE IV

REACTIONS (6)
  - Drug interaction [Unknown]
  - Rhabdomyolysis [Unknown]
  - Renal failure acute [Unknown]
  - Septic shock [Fatal]
  - Disseminated intravascular coagulation [Fatal]
  - Urinary tract infection [Unknown]
